FAERS Safety Report 8990038 (Version 2)
Quarter: 2013Q1

REPORT INFORMATION
  Report Type: Spontaneous
  Country: BR (occurrence: BR)
  Receive Date: 20121228
  Receipt Date: 20130102
  Transmission Date: 20140127
  Serious: Yes (Hospitalization, Other)
  Sender: FDA-Public Use
  Company Number: BR-AMGEN-BRACT2011069609

PATIENT
  Age: 53 Year
  Sex: Female
  Weight: 58 kg

DRUGS (3)
  1. ENBREL [Suspect]
     Indication: RHEUMATOID ARTHRITIS
     Dosage: SOLUTION FOR INJECTION IN PRE-FILLED PEN, 50MG, WEEKLY
     Route: 058
     Dates: start: 201110
  2. ENBREL [Suspect]
     Dosage: 50 MG, 1X/WEEK
     Route: 058
     Dates: start: 201206
  3. NAPROXEN [Concomitant]
     Dosage: UNK

REACTIONS (6)
  - Rash macular [Unknown]
  - Kidney infection [Unknown]
  - Needle issue [Unknown]
  - Wrong technique in drug usage process [Unknown]
  - Foot fracture [Unknown]
  - Injection site pain [Unknown]
